FAERS Safety Report 7743820-8 (Version None)
Quarter: 2011Q3

REPORT INFORMATION
  Report Type: 
  Country: None (occurrence: None)
  Receive Date: 20110912
  Receipt Date: 20110831
  Transmission Date: 20111222
  Serious: Yes (Other)
  Sender: FDA-Public Use
  Company Number: US-GLAXOSMITHKLINE-A0896984A

PATIENT
  Age: 44 Year
  Sex: Female
  Weight: 81.8 kg

DRUGS (1)
  1. AVANDIA [Suspect]
     Indication: TYPE 2 DIABETES MELLITUS
     Dosage: 4MG TWICE PER DAY
     Route: 048
     Dates: start: 20010917, end: 20051221

REACTIONS (4)
  - CARDIOMYOPATHY [None]
  - CARDIOVASCULAR DISORDER [None]
  - ARRHYTHMIA [None]
  - HEART RATE IRREGULAR [None]
